FAERS Safety Report 21377452 (Version 1)
Quarter: 2022Q3

REPORT INFORMATION
  Report Type: Spontaneous
  Country: GB (occurrence: GB)
  Receive Date: 20220926
  Receipt Date: 20220926
  Transmission Date: 20221027
  Serious: Yes (Other)
  Sender: FDA-Public Use
  Company Number: GB-TEVA-2022-GB-2076826

PATIENT
  Age: 23 Year
  Sex: Male

DRUGS (3)
  1. PREDNISOLONE [Suspect]
     Active Substance: PREDNISOLONE
     Indication: Henoch-Schonlein purpura
     Route: 048
  2. PREDNISOLONE [Suspect]
     Active Substance: PREDNISOLONE
     Indication: Vasculitis
     Route: 048
  3. TOZINAMERAN [Suspect]
     Active Substance: TOZINAMERAN
     Indication: COVID-19 immunisation
     Route: 065

REACTIONS (3)
  - Vasculitis [Recovered/Resolved]
  - Henoch-Schonlein purpura [Recovered/Resolved]
  - Rebound effect [Recovered/Resolved]
